FAERS Safety Report 7952484-X (Version None)
Quarter: 2011Q4

REPORT INFORMATION
  Report Type: 
  Country: None (occurrence: None)
  Receive Date: 20111201
  Receipt Date: 20111122
  Transmission Date: 20120403
  Serious: Yes (Other)
  Sender: FDA-Public Use
  Company Number: JP-ALLERGAN-1115407US

PATIENT
  Age: 65 Year
  Sex: Male

DRUGS (4)
  1. LUMIGAN [Suspect]
     Indication: GLAUCOMA
     Dosage: 1 GTT, QD
     Route: 047
     Dates: start: 20100129
  2. LUMIGAN [Suspect]
     Dosage: 1 GTT, QD
     Route: 047
     Dates: start: 20101108
  3. CARTEOLOL HYDROCHLORIDE [Concomitant]
     Indication: PRODUCT USED FOR UNKNOWN INDICATION
     Dosage: UNK
     Route: 047
     Dates: start: 20100118
  4. TEARBALANCE [Concomitant]
     Indication: PRODUCT USED FOR UNKNOWN INDICATION
     Dosage: UNK
     Route: 047
     Dates: start: 20100118

REACTIONS (3)
  - OPTIC ATROPHY [None]
  - INTRAOCULAR PRESSURE INCREASED [None]
  - RETINAL VEIN OCCLUSION [None]
